FAERS Safety Report 7012590-3 (Version None)
Quarter: 2010Q3

REPORT INFORMATION
  Report Type: 
  Country: None (occurrence: None)
  Receive Date: 20100923
  Receipt Date: 20100923
  Transmission Date: 20110219
  Serious: Yes (Other)
  Sender: FDA-Public Use
  Company Number: None

PATIENT
  Age: 60 Year
  Sex: Female
  Weight: 77.1115 kg

DRUGS (4)
  1. RESTASIS [Suspect]
     Indication: DRY EYE
     Dosage: 1 DROP TWICE A DAY DROP
     Dates: start: 20100825, end: 20100831
  2. LEXAPRO [Concomitant]
  3. LEVOTHYROXINE SODIUM [Concomitant]
  4. VYTORIN [Concomitant]

REACTIONS (4)
  - BLOOD URINE PRESENT [None]
  - ORAL HERPES [None]
  - RASH [None]
  - URINARY TRACT INFECTION [None]
